FAERS Safety Report 5965071-X (Version None)
Quarter: 2008Q4

REPORT INFORMATION
  Report Type: 
  Country: None (occurrence: None)
  Receive Date: 20081124
  Receipt Date: 20081124
  Transmission Date: 20090506
  Serious: Yes (Disabling, Other)
  Sender: FDA-Public Use
  Company Number: None

PATIENT
  Age: 60 Year
  Sex: Female
  Weight: 72.5755 kg

DRUGS (2)
  1. AUGMENTIN '875' [Suspect]
     Indication: SINUSITIS
     Dosage: 850 MG TABLET I PO BID PO
     Route: 048
     Dates: start: 20060318, end: 20060328
  2. AUGMENTIN '875' [Suspect]
     Indication: SINUSITIS
     Dosage: 850 MG TABLET I PO BID PO
     Route: 048
     Dates: start: 20061014, end: 20061014

REACTIONS (6)
  - DEVICE INEFFECTIVE [None]
  - ECONOMIC PROBLEM [None]
  - FIBROMYALGIA [None]
  - GAIT DISTURBANCE [None]
  - NO THERAPEUTIC RESPONSE [None]
  - TENDONITIS [None]
